FAERS Safety Report 6753963-3 (Version None)
Quarter: 2010Q2

REPORT INFORMATION
  Report Type: 
  Country: None (occurrence: None)
  Receive Date: 20100603
  Receipt Date: 20100525
  Transmission Date: 20101027
  Serious: Yes (Hospitalization)
  Sender: FDA-Public Use
  Company Number: A0862275A

PATIENT
  Age: 57 Year
  Sex: Male

DRUGS (2)
  1. AVANDIA [Suspect]
     Route: 048
     Dates: start: 20040101, end: 20070101
  2. AVANDAMET [Suspect]
     Route: 048
     Dates: start: 20041201, end: 20050201

REACTIONS (1)
  - MYOCARDIAL INFARCTION [None]
